FAERS Safety Report 24809906 (Version 1)
Quarter: 2025Q1

REPORT INFORMATION
  Report Type: Spontaneous
  Country: US (occurrence: None)
  Receive Date: 20250103
  Receipt Date: 20250103
  Transmission Date: 20250409
  Serious: Yes (Other)
  Sender: FDA-CTU
  Company Number: None

PATIENT
  Age: 69 Year
  Sex: Female
  Weight: 59 kg

DRUGS (12)
  1. DIVALPROEX SODIUM [Suspect]
     Active Substance: DIVALPROEX SODIUM
     Indication: Schizoaffective disorder bipolar type
     Dosage: FREQUENCY : AT BEDTIME;?
     Route: 048
     Dates: start: 20240701
  2. APIXABAN [Concomitant]
     Active Substance: APIXABAN
  3. BENZTROPINE [Concomitant]
     Active Substance: BENZTROPINE
  4. LORAZEPAM [Concomitant]
     Active Substance: LORAZEPAM
  5. POLYETHYLENE GLYCOL [Concomitant]
     Active Substance: POLYETHYLENE GLYCOL
  6. MIRTAZAPINE [Concomitant]
     Active Substance: MIRTAZAPINE
  7. VITAMINS [Concomitant]
     Active Substance: VITAMINS
  8. PANTOPRAZOLE [Concomitant]
     Active Substance: PANTOPRAZOLE
  9. RISPERIDONE [Concomitant]
     Active Substance: RISPERIDONE
  10. ROSUVASTATIN [Concomitant]
     Active Substance: ROSUVASTATIN
  11. SENNOSIDES [Concomitant]
     Active Substance: SENNOSIDES
  12. SERTRALINE [Concomitant]
     Active Substance: SERTRALINE HYDROCHLORIDE

REACTIONS (1)
  - Platelet count decreased [None]

NARRATIVE: CASE EVENT DATE: 20240909
